FAERS Safety Report 16291676 (Version 3)
Quarter: 2019Q2

REPORT INFORMATION
  Report Type: Spontaneous
  Country: ZA (occurrence: ZA)
  Receive Date: 20190509
  Receipt Date: 20190524
  Transmission Date: 20190711
  Serious: Yes (Other)
  Sender: FDA-Public Use
  Company Number: IND-ZA-009507513-1905ZAF001483

PATIENT
  Age: 46 Year
  Sex: Male

DRUGS (3)
  1. EXINEF [Suspect]
     Active Substance: ETORICOXIB
     Indication: PAIN IN EXTREMITY
     Dosage: 90 MILLIGRAM
     Route: 048
  2. ARCOXIA [Suspect]
     Active Substance: ETORICOXIB
     Indication: PAIN IN EXTREMITY
  3. WARFARIN [Concomitant]
     Active Substance: WARFARIN

REACTIONS (11)
  - Pruritus generalised [Unknown]
  - Atrial fibrillation [Unknown]
  - Pyrexia [Unknown]
  - Erythema [Unknown]
  - Anxiety [Unknown]
  - Skin reaction [Unknown]
  - Rash [Unknown]
  - Nausea [Unknown]
  - Ocular hyperaemia [Unknown]
  - Piloerection [Unknown]
  - Generalised erythema [Unknown]
